FAERS Safety Report 6806107-3 (Version None)
Quarter: 2010Q2

REPORT INFORMATION
  Report Type: 
  Country: None (occurrence: None)
  Receive Date: 20100629
  Receipt Date: 20071218
  Transmission Date: 20101027
  Serious: No
  Sender: FDA-Public Use
  Company Number: US-PFIZER INC-2008000116

PATIENT
  Sex: Male
  Weight: 113.4 kg

DRUGS (5)
  1. VIAGRA [Suspect]
     Indication: ERECTILE DYSFUNCTION
     Dates: start: 19960101
  2. ALLOPURINOL [Concomitant]
  3. GEMFIBROZIL [Concomitant]
  4. ALL OTHER THERAPEUTIC PRODUCTS [Concomitant]
  5. VITAMINS [Concomitant]

REACTIONS (1)
  - DRUG INEFFECTIVE [None]
